FAERS Safety Report 18087571 (Version 1)
Quarter: 2020Q3

REPORT INFORMATION
  Report Type: Spontaneous
  Country: MX (occurrence: MX)
  Receive Date: 20200729
  Receipt Date: 20200729
  Transmission Date: 20201103
  Serious: Yes (Other)
  Sender: FDA-Public Use
  Company Number: MX-PFIZER INC-2020286093

PATIENT
  Age: 35 Year
  Sex: Female

DRUGS (6)
  1. TRIAMCINOLONE [Suspect]
     Active Substance: TRIAMCINOLONE
     Indication: VOGT-KOYANAGI-HARADA DISEASE
     Dosage: UNK, INTRAVITREAL
  2. METHOTREXATE SODIUM. [Suspect]
     Active Substance: METHOTREXATE SODIUM
     Indication: VOGT-KOYANAGI-HARADA DISEASE
     Dosage: 20 MG, WEEKLY
     Route: 048
  3. CYCLOPHOSPHAMIDE. [Suspect]
     Active Substance: CYCLOPHOSPHAMIDE
     Indication: VOGT-KOYANAGI-HARADA DISEASE
     Dosage: UNK, MONTHLY
     Route: 042
  4. METHOTREXATE. [Suspect]
     Active Substance: METHOTREXATE
     Indication: VOGT-KOYANAGI-HARADA DISEASE
     Dosage: UNK, INTRAVITREAL, 400U/0.1 ML (ADMINISTERED IN BOTH EYES)
  5. DICLOFENAC [Suspect]
     Active Substance: DICLOFENAC
     Indication: VOGT-KOYANAGI-HARADA DISEASE
     Dosage: UNK
     Route: 061
  6. TRIAMCINOLONE [Suspect]
     Active Substance: TRIAMCINOLONE
     Dosage: UNK, INTRAVITREAL (ANOTHER DOSE OF INTRAVITREAL TRIAMCINOLONE WAS GIVEN 6 MONTHS LATER)

REACTIONS (5)
  - Drug ineffective [Unknown]
  - Off label use [Unknown]
  - Condition aggravated [Recovered/Resolved]
  - Product use in unapproved indication [Unknown]
  - Lenticular opacities [Recovered/Resolved]
